FAERS Safety Report 6746362-1 (Version None)
Quarter: 2010Q2

REPORT INFORMATION
  Report Type: 
  Country: None (occurrence: None)
  Receive Date: 20100528
  Receipt Date: 20100521
  Transmission Date: 20101027
  Serious: Yes (Death)
  Sender: FDA-Public Use
  Company Number: DE-ROCHE-641946

PATIENT
  Sex: Female
  Weight: 64.4 kg

DRUGS (4)
  1. METHOXY POLYETHYLENE GLYCOL-EPOETIN BETA [Suspect]
     Route: 042
     Dates: start: 20090609
  2. AMIODARONE HCL [Concomitant]
     Route: 048
     Dates: start: 20090401
  3. FERRLECIT [Concomitant]
     Indication: IRON DEFICIENCY
     Route: 042
     Dates: start: 20070307
  4. AMLODIPINE [Concomitant]
     Indication: HYPERTENSION
     Route: 048
     Dates: start: 20070227

REACTIONS (1)
  - DEATH [None]
